FAERS Safety Report 25223291 (Version 1)
Quarter: 2025Q2

REPORT INFORMATION
  Report Type: Spontaneous
  Country: US (occurrence: US)
  Receive Date: 20250422
  Receipt Date: 20250422
  Transmission Date: 20250716
  Serious: Yes (Life-Threatening, Hospitalization)
  Sender: DR REDDYS
  Company Number: None

PATIENT
  Age: 13 Year
  Sex: Male
  Weight: 85 kg

DRUGS (2)
  1. PROPOFOL [Suspect]
     Active Substance: PROPOFOL
     Indication: Intracranial pressure increased
     Dosage: HE RECEIVED PROPOFOL FOR 5 DAYS, WITH APPROXIMATELY 48 HOURS OF AN INFUSION EXCEEDING 7.5?MG/KG/HR
  2. PENTOBARBITAL [Concomitant]
     Active Substance: PENTOBARBITAL
     Indication: Intracranial pressure increased

REACTIONS (4)
  - Electrocardiogram ST segment elevation [Recovered/Resolved]
  - Electrocardiogram QRS complex prolonged [Recovered/Resolved]
  - Propofol infusion syndrome [Recovered/Resolved]
  - Acute kidney injury [Recovered/Resolved]
